FAERS Safety Report 4634651-6 (Version None)
Quarter: 2005Q2

REPORT INFORMATION
  Report Type: 
  Country: None (occurrence: None)
  Receive Date: 20050413
  Receipt Date: 20050401
  Transmission Date: 20051028
  Serious: Yes (Other)
  Sender: FDA-Public Use
  Company Number: 2005054806

PATIENT
  Age: 63 Year
  Sex: Male
  Weight: 127.0072 kg

DRUGS (23)
  1. INSPRA [Suspect]
     Indication: CARDIAC FAILURE CONGESTIVE
     Dosage: 25 MG (25 MG, DAILY), ORAL
     Route: 048
     Dates: start: 20050316
  2. INSULIN GLARGINE (INSULIN GLARGINE) [Concomitant]
  3. PIOGLITAZONE HCL [Concomitant]
  4. INSULIN [Concomitant]
  5. ATORVASTATIN CALCIUM [Concomitant]
  6. NICOTINIC ACID [Concomitant]
  7. FUROSEMIDE [Concomitant]
  8. POTASSIUM ACETATE [Concomitant]
  9. METOPROLOL TARTRATE [Concomitant]
  10. IBUPROFEN [Concomitant]
  11. AMIODARONE HCL [Concomitant]
  12. SERTRALINE HCL [Concomitant]
  13. DIGOXIN [Concomitant]
  14. ENALAPRIL MALEATE [Concomitant]
  15. OXYGEN (OXYGEN) [Concomitant]
  16. TOCOPHEROL (TOCOPHEROL) [Concomitant]
  17. ASCORBIC ACID [Concomitant]
  18. ZINC (ZINC) [Concomitant]
  19. VITAMIN B (VITAMIN B) [Concomitant]
  20. GARLIC (GARLIC) [Concomitant]
  21. MULTIVITAMINS (ASCORBIC ACID, ERGOCALCIFEROL, FOLIC ACID, NICOTINAMIDE [Concomitant]
  22. CALCUM PLUS (CALCIUM PLUS) [Concomitant]
  23. UBIDECARENONE (UBIDECARENONE) [Concomitant]

REACTIONS (1)
  - BLOOD GLUCOSE INCREASED [None]
